FAERS Safety Report 6811463-6 (Version None)
Quarter: 2010Q2

REPORT INFORMATION
  Report Type: 
  Country: None (occurrence: None)
  Receive Date: 20100629
  Receipt Date: 20100629
  Transmission Date: 20101027
  Serious: Yes (Life-Threatening, Disabling)
  Sender: FDA-Public Use
  Company Number: None

PATIENT
  Age: 68 Year
  Sex: Female
  Weight: 69.4003 kg

DRUGS (2)
  1. MAGNESIUM CITRATE [Suspect]
     Indication: BOWEL PREPARATION
     Dosage: 10 OZ ONCE PO
     Route: 048
     Dates: start: 20100624, end: 20100624
  2. MAGNESIUM CITRATE [Suspect]
     Indication: SIGMOIDOSCOPY
     Dosage: 10 OZ ONCE PO
     Route: 048
     Dates: start: 20100624, end: 20100624

REACTIONS (3)
  - ATRIAL FIBRILLATION [None]
  - BLOOD PRESSURE INCREASED [None]
  - ELECTROLYTE IMBALANCE [None]
